FAERS Safety Report 6633264-4 (Version None)
Quarter: 2010Q1

REPORT INFORMATION
  Report Type: 
  Country: None (occurrence: None)
  Receive Date: 20100312
  Receipt Date: 20100303
  Transmission Date: 20100710
  Serious: Yes (Other)
  Sender: FDA-Public Use
  Company Number: AU-PFIZER INC-2010027598

PATIENT
  Sex: Male

DRUGS (4)
  1. LIPITOR [Suspect]
     Indication: FAMILIAL RISK FACTOR
     Dosage: 10 MG, UNK
  2. WARFARIN [Concomitant]
     Dosage: UNK
  3. ASPIRIN [Concomitant]
     Dosage: UNK
  4. SERETIDE [Concomitant]

REACTIONS (2)
  - AORTIC VALVE REPLACEMENT [None]
  - LOW DENSITY LIPOPROTEIN INCREASED [None]
